FAERS Safety Report 9344016 (Version 1)
Quarter: 2013Q2

REPORT INFORMATION
  Report Type: Spontaneous
  Country: US (occurrence: US)
  Receive Date: 20130612
  Receipt Date: 20130612
  Transmission Date: 20140414
  Serious: No
  Sender: FDA-Public Use
  Company Number: US-PFIZER INC-2013175627

PATIENT
  Age: 84 Year
  Sex: Female

DRUGS (1)
  1. NEURONTIN [Suspect]
     Dosage: UNK

REACTIONS (5)
  - Confusional state [Unknown]
  - Balance disorder [Unknown]
  - Screaming [Unknown]
  - Crying [Unknown]
  - Malaise [Unknown]
